FAERS Safety Report 6836243-7 (Version None)
Quarter: 2010Q3

REPORT INFORMATION
  Report Type: 
  Country: None (occurrence: None)
  Receive Date: 20100713
  Receipt Date: 20100628
  Transmission Date: 20110219
  Serious: Yes (Death)
  Sender: FDA-Public Use
  Company Number: US-GILEAD-2010-0030261

PATIENT
  Sex: Male

DRUGS (14)
  1. LETAIRIS [Suspect]
     Indication: PULMONARY ARTERIAL HYPERTENSION
     Route: 048
     Dates: start: 20080911, end: 20100624
  2. LASIX [Concomitant]
  3. SPIRIVA [Concomitant]
  4. TYVASO [Concomitant]
  5. PLAVIX [Concomitant]
  6. ASPIRIN [Concomitant]
  7. ADCIRCA [Concomitant]
  8. MAXAIR [Concomitant]
  9. VITAMIN C [Concomitant]
  10. LIPITOR [Concomitant]
  11. KLOR-CON [Concomitant]
  12. LEVOTHYROXINE SODIUM [Concomitant]
  13. ALLOPURINOL [Concomitant]
  14. NEXIUM [Concomitant]

REACTIONS (1)
  - DEATH [None]
